FAERS Safety Report 7728868-1 (Version None)
Quarter: 2011Q3

REPORT INFORMATION
  Report Type: 
  Country: None (occurrence: None)
  Receive Date: 20110831
  Receipt Date: 20110816
  Transmission Date: 20111222
  Serious: Yes (Life-Threatening, Hospitalization, Other)
  Sender: FDA-Public Use
  Company Number: 2011MA012011

PATIENT
  Age: 41 Year
  Sex: Male

DRUGS (2)
  1. IBUPROFEN [Suspect]
     Indication: DRUG ABUSE
     Dosage: 5 GM, QD
  2. CODEINE SULFATE [Suspect]
     Indication: DRUG ABUSE

REACTIONS (5)
  - HYPOKALAEMIA [None]
  - RENAL TUBULAR ACIDOSIS [None]
  - INTENTIONAL DRUG MISUSE [None]
  - ASTHENIA [None]
  - METABOLIC ACIDOSIS [None]
